FAERS Safety Report 11654348 (Version 1)
Quarter: 2015Q4

REPORT INFORMATION
  Report Type: Spontaneous
  Country: US (occurrence: None)
  Receive Date: 20151022
  Receipt Date: 20151022
  Transmission Date: 20160304
  Serious: Yes (Hospitalization)
  Sender: FDA-Public Use
  Company Number: None

PATIENT
  Age: 29 Month
  Sex: Female
  Weight: 9.8 kg

DRUGS (5)
  1. D5W [Concomitant]
  2. 1/2NS [Concomitant]
  3. NS BOLUS [Concomitant]
  4. KCL [Concomitant]
     Active Substance: POTASSIUM CHLORIDE
  5. HURRICAINE [Suspect]
     Active Substance: BENZOCAINE
     Indication: LOCAL ANAESTHESIA
     Dosage: 1 SPRAY,  2 DOSES, Q10MIN
     Route: 061
     Dates: start: 20151013, end: 20151013

REACTIONS (4)
  - Feeling abnormal [None]
  - Methaemoglobinaemia [None]
  - Cyanosis [None]
  - Hypoxia [None]

NARRATIVE: CASE EVENT DATE: 20151013
